FAERS Safety Report 13804153 (Version 2)
Quarter: 2017Q3

REPORT INFORMATION
  Report Type: Spontaneous
  Country: ID (occurrence: ID)
  Receive Date: 20170728
  Receipt Date: 20170809
  Transmission Date: 20171127
  Serious: Yes (Hospitalization, Other)
  Sender: FDA-Public Use
  Company Number: ID-ASTRAZENECA-2017SE75936

PATIENT
  Age: 50 Year
  Sex: Male
  Weight: 60 kg

DRUGS (13)
  1. BRILINTA [Suspect]
     Active Substance: TICAGRELOR
     Indication: ACUTE CORONARY SYNDROME
     Route: 048
  2. BRILINTA [Suspect]
     Active Substance: TICAGRELOR
     Indication: ACUTE CORONARY SYNDROME
     Dosage: 180 MG, ONCE DAILY, LOADING DOSE
     Route: 048
     Dates: start: 20160624
  3. THROMBO ASPILETS [Concomitant]
     Indication: CARDIAC FAILURE CONGESTIVE
  4. BRILINTA [Suspect]
     Active Substance: TICAGRELOR
     Indication: CARDIAC FAILURE CONGESTIVE
     Dosage: 180 MG, ONCE DAILY, LOADING DOSE
     Route: 048
     Dates: start: 20160624
  5. BRILINTA [Suspect]
     Active Substance: TICAGRELOR
     Indication: ACUTE CORONARY SYNDROME
     Dosage: TICAGRELOR
     Route: 048
  6. BRILINTA [Suspect]
     Active Substance: TICAGRELOR
     Indication: CORONARY ARTERY DISEASE
     Dosage: 180 MG, ONCE DAILY, LOADING DOSE
     Route: 048
     Dates: start: 20160624
  7. THROMBO ASPILETS [Concomitant]
     Indication: CORONARY ARTERY DISEASE
  8. BRILINTA [Suspect]
     Active Substance: TICAGRELOR
     Indication: CARDIAC FAILURE CONGESTIVE
     Route: 048
  9. BRILINTA [Suspect]
     Active Substance: TICAGRELOR
     Indication: CORONARY ARTERY DISEASE
     Route: 048
  10. BRILINTA [Suspect]
     Active Substance: TICAGRELOR
     Indication: CARDIAC FAILURE CONGESTIVE
     Dosage: TICAGRELOR
     Route: 048
  11. PLAVIX [Concomitant]
     Active Substance: CLOPIDOGREL BISULFATE
     Indication: CARDIAC FAILURE CONGESTIVE
  12. BRILINTA [Suspect]
     Active Substance: TICAGRELOR
     Indication: CORONARY ARTERY DISEASE
     Dosage: TICAGRELOR
     Route: 048
  13. PLAVIX [Concomitant]
     Active Substance: CLOPIDOGREL BISULFATE
     Indication: CORONARY ARTERY DISEASE

REACTIONS (1)
  - Vascular stent thrombosis [Unknown]
